FAERS Safety Report 25561592 (Version 1)
Quarter: 2025Q3

REPORT INFORMATION
  Report Type: Spontaneous
  Country: CN (occurrence: CN)
  Receive Date: 20250716
  Receipt Date: 20250716
  Transmission Date: 20251020
  Serious: Yes (Hospitalization)
  Sender: BEIGENE
  Company Number: CN-BEIGENE-BGN-2025-011084

PATIENT
  Age: 63 Year
  Weight: 50 kg

DRUGS (8)
  1. TISLELIZUMAB [Suspect]
     Active Substance: TISLELIZUMAB
     Indication: Lung neoplasm malignant
  2. TISLELIZUMAB [Suspect]
     Active Substance: TISLELIZUMAB
     Route: 041
  3. TISLELIZUMAB [Suspect]
     Active Substance: TISLELIZUMAB
     Route: 041
  4. TISLELIZUMAB [Suspect]
     Active Substance: TISLELIZUMAB
  5. PACLITAXEL [Suspect]
     Active Substance: PACLITAXEL
     Indication: Lung neoplasm malignant
  6. PACLITAXEL [Suspect]
     Active Substance: PACLITAXEL
     Route: 041
  7. PACLITAXEL [Suspect]
     Active Substance: PACLITAXEL
  8. PACLITAXEL [Suspect]
     Active Substance: PACLITAXEL
     Route: 041

REACTIONS (1)
  - Agranulocytosis [Recovering/Resolving]
